FAERS Safety Report 7335088-1 (Version None)
Quarter: 2011Q1

REPORT INFORMATION
  Report Type: 
  Country: None (occurrence: None)
  Receive Date: 20110223
  Receipt Date: 20100902
  Transmission Date: 20110831
  Serious: Yes (Disabling)
  Sender: FDA-Public Use
  Company Number: WAES 1009USA00396

PATIENT
  Age: 21 Year
  Sex: Male

DRUGS (2)
  1. PROPECIA [Suspect]
     Indication: ALOPECIA
     Dosage: 1 MG/DAILY/PO
     Route: 048
     Dates: start: 20060228, end: 20100826
  2. ZYRTEC [Concomitant]

REACTIONS (1)
  - ERECTILE DYSFUNCTION [None]
